FAERS Safety Report 11857290 (Version 3)
Quarter: 2016Q1

REPORT INFORMATION
  Report Type: Spontaneous
  Country: US (occurrence: US)
  Receive Date: 20151221
  Receipt Date: 20160223
  Transmission Date: 20160526
  Serious: Yes (Other)
  Sender: FDA-Public Use
  Company Number: US-PFIZER INC-2015450569

PATIENT
  Age: 67 Year
  Sex: Male
  Weight: 109 kg

DRUGS (4)
  1. TIKOSYN [Suspect]
     Active Substance: DOFETILIDE
     Indication: ATRIAL FIBRILLATION
     Dosage: UNK
     Dates: start: 2013
  2. ASPIRIN 81 [Suspect]
     Active Substance: ASPIRIN
     Dosage: 81 MG, 1X/DAY (81 MG, TINY PILL, 1X/DAY)
     Route: 048
  3. MULTAQ [Suspect]
     Active Substance: DRONEDARONE
     Dosage: UNK
  4. CHOLESTYRAMINE. [Concomitant]
     Active Substance: CHOLESTYRAMINE
     Indication: BILE OUTPUT INCREASED
     Dosage: SUSPENSION, 2X/DAY

REACTIONS (3)
  - Drug ineffective [Unknown]
  - Cerebrovascular accident [Unknown]
  - Blood pressure fluctuation [Unknown]
